FAERS Safety Report 7423108-5 (Version None)
Quarter: 2011Q2

REPORT INFORMATION
  Report Type: 
  Country: None (occurrence: None)
  Receive Date: 20110419
  Receipt Date: 20100603
  Transmission Date: 20111010
  Serious: No
  Sender: FDA-Public Use
  Company Number: US-TYCO HEALTHCARE/MALLINCKRODT-T201001384

PATIENT

DRUGS (2)
  1. ANTIHYPERTENSIVES [Concomitant]
     Indication: HYPERTENSION
  2. METHYLIN ER [Suspect]
     Indication: DEPRESSION
     Dosage: 20 MG, TID

REACTIONS (2)
  - OFF LABEL USE [None]
  - DRUG INEFFECTIVE [None]
